FAERS Safety Report 4808479-8 (Version None)
Quarter: 2005Q4

REPORT INFORMATION
  Report Type: 
  Country: None (occurrence: None)
  Receive Date: 20051021
  Receipt Date: 20030814
  Transmission Date: 20060501
  Serious: No
  Sender: FDA-Public Use
  Company Number: DE_030811866

PATIENT
  Age: 72 Year
  Sex: Male

DRUGS (6)
  1. ZYPREXA [Suspect]
     Indication: MAJOR DEPRESSION
     Dosage: 5 MG/2 DAY
     Dates: start: 20030808, end: 20030811
  2. ASPIRIN [Concomitant]
  3. CITALOPRAM HYDROBROMIDE [Concomitant]
  4. CARBIDOPA + LEVODOPA [Concomitant]
  5. LORAZEPAM [Concomitant]
  6. XIMOVAN (ZOPLICONE) [Concomitant]

REACTIONS (1)
  - WHITE BLOOD CELL COUNT DECREASED [None]
